FAERS Safety Report 8318680-7 (Version None)
Quarter: 2012Q2

REPORT INFORMATION
  Report Type: 
  Country: None (occurrence: None)
  Receive Date: 20120425
  Receipt Date: 20120416
  Transmission Date: 20120825
  Serious: Yes (Life-Threatening)
  Sender: FDA-Public Use
  Company Number: US-LHC-2012004

PATIENT
  Age: 16 Year
  Sex: Male

DRUGS (1)
  1. NITROUS OXIDE W/ OXYGEN [Suspect]
     Indication: PRODUCT USED FOR UNKNOWN INDICATION
     Dosage: INHALATION
     Route: 055
     Dates: start: 19950411, end: 19950416

REACTIONS (2)
  - PNEUMOTHORAX [None]
  - VENTRICULAR TACHYCARDIA [None]
